FAERS Safety Report 6695440-4 (Version None)
Quarter: 2010Q2

REPORT INFORMATION
  Report Type: 
  Country: None (occurrence: None)
  Receive Date: 20100422
  Receipt Date: 20100422
  Transmission Date: 20101027
  Serious: Yes (Other)
  Sender: FDA-Public Use
  Company Number: None

PATIENT
  Age: 42 Year
  Sex: Female
  Weight: 56.6996 kg

DRUGS (1)
  1. BOTOX [Suspect]
     Indication: SKIN WRINKLING
     Dosage: 15 UNITS RT. EYE 1 15 UNITS LFT EYE 1 INJECTION
     Dates: start: 20100317

REACTIONS (32)
  - ABDOMINAL DISCOMFORT [None]
  - ALOPECIA [None]
  - DECREASED APPETITE [None]
  - DEHYDRATION [None]
  - DRY MOUTH [None]
  - DRY THROAT [None]
  - DYSPEPSIA [None]
  - DYSPHAGIA [None]
  - DYSPHONIA [None]
  - DYSPNOEA [None]
  - FATIGUE [None]
  - FEELING ABNORMAL [None]
  - GASTROINTESTINAL DISORDER [None]
  - GASTROOESOPHAGEAL REFLUX DISEASE [None]
  - HEADACHE [None]
  - HYPERSENSITIVITY [None]
  - INFLUENZA LIKE ILLNESS [None]
  - INSOMNIA [None]
  - MUSCULAR WEAKNESS [None]
  - MUSCULOSKELETAL STIFFNESS [None]
  - NAIL DISORDER [None]
  - NAUSEA [None]
  - OESOPHAGITIS [None]
  - ONYCHOCLASIS [None]
  - PRODUCTIVE COUGH [None]
  - PRURITUS [None]
  - PYREXIA [None]
  - SINUS DISORDER [None]
  - STOMATITIS [None]
  - THROAT IRRITATION [None]
  - VISION BLURRED [None]
  - WEIGHT DECREASED [None]
